FAERS Safety Report 21307209 (Version 2)
Quarter: 2022Q4

REPORT INFORMATION
  Report Type: Spontaneous
  Country: SA (occurrence: SA)
  Receive Date: 20220908
  Receipt Date: 20221006
  Transmission Date: 20230112
  Serious: Yes (Hospitalization, Other)
  Sender: FDA-Public Use
  Company Number: SA-GLAXOSMITHKLINE-SA2022GSK128266

PATIENT

DRUGS (4)
  1. LAMOTRIGINE [Suspect]
     Active Substance: LAMOTRIGINE
     Indication: Epilepsy
     Dosage: 50 MG, BID
  2. LAMOTRIGINE [Suspect]
     Active Substance: LAMOTRIGINE
     Dosage: 25 MG, 1D
  3. KEPPRA [Suspect]
     Active Substance: LEVETIRACETAM
     Indication: Epilepsy
     Dosage: 750 MG, BID (2X/DAY)
  4. LACOSAMIDE [Concomitant]
     Active Substance: LACOSAMIDE
     Indication: Epilepsy
     Dosage: 50 MG, BID

REACTIONS (17)
  - Drug reaction with eosinophilia and systemic symptoms [Recovered/Resolved]
  - Pyrexia [Unknown]
  - Rash maculo-papular [Unknown]
  - Pancytopenia [Recovered/Resolved]
  - Oropharyngeal pain [Recovered/Resolved]
  - Pallor [Recovered/Resolved]
  - Dehydration [Recovered/Resolved]
  - Rash pustular [Recovered/Resolved]
  - Rash [Recovered/Resolved]
  - Lymph node palpable [Recovered/Resolved]
  - Liver function test abnormal [Recovered/Resolved]
  - Liver function test increased [Recovered/Resolved]
  - Leukopenia [Recovered/Resolved]
  - Hyponatraemia [Recovered/Resolved]
  - Thrombocytopenia [Recovered/Resolved]
  - Microcytic anaemia [Recovered/Resolved]
  - Drug intolerance [Unknown]
